FAERS Safety Report 16230819 (Version 3)
Quarter: 2020Q3

REPORT INFORMATION
  Report Type: Report from Study
  Country: US (occurrence: US)
  Receive Date: 20190423
  Receipt Date: 20200813
  Transmission Date: 20201102
  Serious: No
  Sender: FDA-Public Use
  Company Number: PHEH2019US016971

PATIENT
  Age: 76 Year
  Sex: Male

DRUGS (1)
  1. COSENTYX [Suspect]
     Active Substance: SECUKINUMAB
     Indication: PSORIASIS
     Dosage: 300 MG, QMO (2 PENS)
     Route: 058
     Dates: start: 20190218

REACTIONS (10)
  - Skin exfoliation [Recovering/Resolving]
  - Weight increased [Unknown]
  - Blood urine present [Unknown]
  - Blood potassium increased [Unknown]
  - Urine abnormality [Unknown]
  - Skin discolouration [Recovering/Resolving]
  - Psoriasis [Unknown]
  - Dry skin [Recovering/Resolving]
  - Product dose omission issue [Unknown]
  - Therapeutic product effect decreased [Not Recovered/Not Resolved]
